FAERS Safety Report 8957448 (Version 2)
Quarter: 2013Q1

REPORT INFORMATION
  Report Type: Spontaneous
  Country: US (occurrence: US)
  Receive Date: 20121210
  Receipt Date: 20130308
  Transmission Date: 20140127
  Serious: Yes (Other)
  Sender: FDA-Public Use
  Company Number: US-ASTELLAS-2012US011147

PATIENT
  Sex: Male

DRUGS (1)
  1. XTANDI [Suspect]
     Indication: PROSTATE CANCER METASTATIC
     Dosage: 160 MG, UID/QD
     Route: 048
     Dates: start: 20120912

REACTIONS (7)
  - Fall [Unknown]
  - Abdominal discomfort [Unknown]
  - Prostatic specific antigen decreased [Unknown]
  - Vomiting [Unknown]
  - Malaise [Unknown]
  - Muscular weakness [Unknown]
  - Asthenia [Unknown]
